FAERS Safety Report 4749925-8 (Version None)
Quarter: 2005Q3

REPORT INFORMATION
  Report Type: 
  Country: None (occurrence: None)
  Receive Date: 20050822
  Receipt Date: 20050810
  Transmission Date: 20060218
  Serious: Yes (Hospitalization)
  Sender: FDA-Public Use
  Company Number: GBWYE645005MAY05

PATIENT
  Age: 49 Year
  Sex: Female

DRUGS (2)
  1. EFFEXOR [Suspect]
     Indication: DEPRESSION
     Dosage: SEE IMAGE
     Route: 048
     Dates: start: 19980101
  2. EFFEXOR [Suspect]
     Indication: DYSPHORIA
     Dosage: SEE IMAGE
     Route: 048
     Dates: start: 19980101

REACTIONS (2)
  - HYPERTHYROIDISM [None]
  - TRANSIENT ISCHAEMIC ATTACK [None]
